FAERS Safety Report 5536511-5 (Version None)
Quarter: 2007Q4

REPORT INFORMATION
  Report Type: 
  Country: None (occurrence: None)
  Receive Date: 20071206
  Receipt Date: 20071010
  Transmission Date: 20080405
  Serious: Yes (Other)
  Sender: FDA-Public Use
  Company Number: US-AMGEN-QUU240988

PATIENT
  Sex: Female
  Weight: 53.6 kg

DRUGS (4)
  1. ENBREL [Suspect]
     Indication: RHEUMATOID ARTHRITIS
     Route: 058
     Dates: start: 20001201, end: 20070814
  2. FOSAMAX [Concomitant]
     Indication: OSTEOPOROSIS
     Route: 048
     Dates: start: 20000901, end: 20070814
  3. DARVOCET [Concomitant]
     Indication: PAIN
     Route: 048
     Dates: start: 20021201
  4. AMBIEN [Concomitant]
     Route: 048
     Dates: start: 20060301

REACTIONS (6)
  - CUTANEOUS LUPUS ERYTHEMATOSUS [None]
  - DRY EYE [None]
  - HYPOAESTHESIA [None]
  - OSTEOARTHRITIS [None]
  - PAIN [None]
  - RALES [None]
